FAERS Safety Report 16095715 (Version 1)
Quarter: 2019Q1

REPORT INFORMATION
  Report Type: Spontaneous
  Country: BR (occurrence: BR)
  Receive Date: 20190320
  Receipt Date: 20190320
  Transmission Date: 20190418
  Serious: Yes (Hospitalization, Other)
  Sender: FDA-Public Use
  Company Number: BR-JNJFOC-20190320877

PATIENT
  Age: 17 Year
  Sex: Female
  Weight: 54 kg

DRUGS (7)
  1. HALDOL [Suspect]
     Active Substance: HALOPERIDOL
     Indication: BORDERLINE PERSONALITY DISORDER
     Route: 048
     Dates: start: 201807
  2. RIVOTRIL [Concomitant]
     Active Substance: CLONAZEPAM
     Route: 065
  3. FLUOXETINE [Concomitant]
     Active Substance: FLUOXETINE HYDROCHLORIDE
     Route: 065
  4. VALPROATE SODIUM. [Concomitant]
     Active Substance: VALPROATE SODIUM
     Route: 065
  5. HALDOL [Suspect]
     Active Substance: HALOPERIDOL
     Indication: BORDERLINE PERSONALITY DISORDER
     Route: 048
     Dates: start: 201807
  6. QUETIAPINE. [Concomitant]
     Active Substance: QUETIAPINE
     Route: 065
  7. MIDAZOLAM [Concomitant]
     Active Substance: MIDAZOLAM HYDROCHLORIDE
     Route: 065

REACTIONS (4)
  - Intentional self-injury [Not Recovered/Not Resolved]
  - Product use in unapproved indication [Unknown]
  - Off label use [Unknown]
  - Personality disorder [Unknown]

NARRATIVE: CASE EVENT DATE: 201807
